FAERS Safety Report 23238450 (Version 1)
Quarter: 2023Q4

REPORT INFORMATION
  Report Type: Spontaneous
  Country: JP (occurrence: JP)
  Receive Date: 20231129
  Receipt Date: 20231129
  Transmission Date: 20240109
  Serious: Yes (Death, Hospitalization)
  Sender: FDA-Public Use
  Company Number: None

PATIENT
  Age: 69 Year
  Sex: Male

DRUGS (1)
  1. CAPECITABINE [Suspect]
     Active Substance: CAPECITABINE
     Indication: Rectal cancer stage III
     Dosage: DAILY DOSE: 3600 MILLIGRAM

REACTIONS (16)
  - Cytomegalovirus enterocolitis [Fatal]
  - Bone marrow failure [Fatal]
  - Haemorrhage [Fatal]
  - Sepsis [Unknown]
  - Pneumonia [Unknown]
  - Rectal ulcer [Unknown]
  - Gastric ulcer [Unknown]
  - Duodenal ulcer [Unknown]
  - Multiple organ dysfunction syndrome [Unknown]
  - Metabolic acidosis [Unknown]
  - Renal failure [Unknown]
  - Staphylococcal infection [Unknown]
  - Bicytopenia [Unknown]
  - Coagulopathy [Unknown]
  - Dihydropyrimidine dehydrogenase deficiency [Unknown]
  - Toxicity to various agents [Unknown]
